FAERS Safety Report 9432279 (Version 1)
Quarter: 2013Q3

REPORT INFORMATION
  Report Type: Spontaneous
  Country: US (occurrence: None)
  Receive Date: 20130729
  Receipt Date: 20130729
  Transmission Date: 20140515
  Serious: Yes (Hospitalization)
  Sender: FDA-Public Use
  Company Number: NSR_01202_2013

PATIENT
  Age: 15 Year
  Sex: Female

DRUGS (4)
  1. HYDROXYZINE [Suspect]
     Indication: ANXIETY
     Dosage: 25 MG PRN, EVERY 8 HOURS ORAL
  2. DIPHENHYDRAMINE [Suspect]
     Indication: ANXIETY
     Route: 030
  3. DULOXETINE [Concomitant]
  4. SERTRALINE [Concomitant]

REACTIONS (15)
  - Depression [None]
  - Suicidal ideation [None]
  - Self injurious behaviour [None]
  - Anxiety [None]
  - Drug dependence [None]
  - Alcohol abuse [None]
  - Headache [None]
  - Nausea [None]
  - Nasal congestion [None]
  - Oral disorder [None]
  - Irritability [None]
  - Blood pressure increased [None]
  - Heart rate increased [None]
  - Upper respiratory tract infection [None]
  - Drug withdrawal syndrome [None]
